FAERS Safety Report 17202162 (Version 1)
Quarter: 2019Q4

REPORT INFORMATION
  Report Type: Spontaneous
  Country: CA (occurrence: CA)
  Receive Date: 20191226
  Receipt Date: 20191226
  Transmission Date: 20200122
  Serious: Yes (Death)
  Sender: FDA-Public Use
  Company Number: CA-PFIZER INC-2019554630

PATIENT
  Age: 47 Year
  Sex: Male
  Weight: 86 kg

DRUGS (5)
  1. CIPROFLOXACIN. [Concomitant]
     Active Substance: CIPROFLOXACIN
     Dosage: UNK
  2. TAMSULOSIN CR [Concomitant]
     Active Substance: TAMSULOSIN
     Dosage: UNK
  3. CLOXACILLIN [Concomitant]
     Active Substance: CLOXACILLIN
     Dosage: UNK
  4. SYNTHROID [Concomitant]
     Active Substance: LEVOTHYROXINE SODIUM
     Dosage: UNK
  5. HYDROMORPHONE HYDROCHLORIDE. [Suspect]
     Active Substance: HYDROMORPHONE HYDROCHLORIDE
     Dosage: UNK
     Route: 065

REACTIONS (1)
  - Poisoning [Fatal]
